FAERS Safety Report 8325480-0 (Version None)
Quarter: 2012Q2

REPORT INFORMATION
  Report Type: 
  Country: None (occurrence: None)
  Receive Date: 20120501
  Receipt Date: 20120424
  Transmission Date: 20120825
  Serious: No
  Sender: FDA-Public Use
  Company Number: US-PFIZER INC-2012082767

PATIENT
  Sex: Female

DRUGS (4)
  1. LIPITOR [Suspect]
     Dosage: 40 MG, (1 PO QHS)
     Route: 048
  2. METOPROLOL [Concomitant]
     Dosage: 25 TWICE DAILY
  3. ASPIRIN [Concomitant]
     Dosage: 81 MG ONCE DAILY
  4. ALTACE [Concomitant]
     Dosage: 5 MG ONCE DAILY

REACTIONS (1)
  - NO ADVERSE EVENT [None]
